FAERS Safety Report 5626917-8 (Version None)
Quarter: 2008Q1

REPORT INFORMATION
  Report Type: 
  Country: None (occurrence: None)
  Receive Date: 20080212
  Receipt Date: 20080130
  Transmission Date: 20080703
  Serious: Yes (Death, Hospitalization)
  Sender: FDA-Public Use
  Company Number: 231081J08USA

PATIENT
  Age: 64 Year
  Sex: Female

DRUGS (4)
  1. REBIF [Suspect]
     Indication: MULTIPLE SCLEROSIS
     Dosage: 44 MCG, 3 IN 1 WEEKS, SUBCUTANEOUS
     Route: 058
     Dates: start: 20060127, end: 20070101
  2. NOVANTRONE [Suspect]
     Indication: MULTIPLE SCLEROSIS
     Dosage: 1 IN 3 MONTHS, INTRAVENOUS (NOT OTHERWISE SPECIFIED)
     Route: 042
     Dates: start: 20060101, end: 20060101
  3. CYMBALTA [Concomitant]
  4. PAIN MEDICATION (ANALGESICS) [Concomitant]

REACTIONS (4)
  - ABASIA [None]
  - CONDITION AGGRAVATED [None]
  - MULTIPLE SCLEROSIS [None]
  - NO THERAPEUTIC RESPONSE [None]
